FAERS Safety Report 19280988 (Version 4)
Quarter: 2021Q2

REPORT INFORMATION
  Report Type: Report from Study
  Country: None (occurrence: US)
  Receive Date: 20210521
  Receipt Date: 20210615
  Transmission Date: 20210717
  Serious: Yes (Hospitalization)
  Sender: FDA-Public Use
  Company Number: US-ABBVIE-21K-163-3905043-00

PATIENT
  Age: 84 Year
  Sex: Female
  Weight: 72.64 kg

DRUGS (2)
  1. RINVOQ [Suspect]
     Active Substance: UPADACITINIB
     Indication: RHEUMATOID ARTHRITIS
     Route: 048
     Dates: start: 202105
  2. MODERNA COVID?19 VACCINE [Concomitant]
     Active Substance: CX-024414
     Indication: COVID-19 IMMUNISATION
     Dosage: MODERNA
     Route: 030

REACTIONS (7)
  - Hyponatraemia [Recovering/Resolving]
  - Fall [Recovered/Resolved]
  - Lumbar vertebral fracture [Recovering/Resolving]
  - Mobility decreased [Unknown]
  - Back injury [Unknown]
  - Fall [Recovering/Resolving]
  - Fall [Recovered/Resolved]

NARRATIVE: CASE EVENT DATE: 2021
